FAERS Safety Report 8066358-X (Version None)
Quarter: 2012Q1

REPORT INFORMATION
  Report Type: 
  Country: None (occurrence: None)
  Receive Date: 20120124
  Receipt Date: 20120116
  Transmission Date: 20120608
  Serious: Yes (Death)
  Sender: FDA-Public Use
  Company Number: US-B.I. PHARMACEUTICALS,INC./RIDGEFIELD-2012-EU-00406GD

PATIENT
  Age: 62 Year
  Sex: Female

DRUGS (18)
  1. COMBIVENT [Suspect]
     Route: 065
  2. DULCOEASE [Suspect]
     Route: 065
  3. AMLODIPINE [Suspect]
     Route: 065
  4. INSULIN [Suspect]
     Route: 065
  5. METOLAZONE [Suspect]
     Route: 065
  6. FLUTICASONE PROPIONATE/SALMETEROL [Suspect]
     Route: 065
  7. OMEPRAZOLE [Suspect]
     Route: 065
  8. SALICYLATE [Suspect]
     Route: 065
  9. CITALOPRAM HYDROBROMIDE [Suspect]
     Route: 065
  10. FUROSEMIDE [Suspect]
     Route: 065
  11. METOPROLOL TARTRATE [Suspect]
     Route: 065
  12. LOVASTATIN [Suspect]
     Route: 065
  13. CLONIDINE [Suspect]
     Route: 065
  14. IRON [Suspect]
     Route: 065
  15. METFORMIN HCL [Suspect]
     Route: 065
  16. GABAPENTIN [Suspect]
     Route: 065
  17. ANGIOTENSIN-CONVERTING ENZYME INHIBITOR [Suspect]
     Route: 065
  18. FAMOTIDINE [Suspect]
     Route: 065

REACTIONS (1)
  - DEATH [None]
